FAERS Safety Report 16350782 (Version 1)
Quarter: 2019Q2

REPORT INFORMATION
  Report Type: Spontaneous
  Country: US (occurrence: US)
  Receive Date: 20190524
  Receipt Date: 20190524
  Transmission Date: 20190711
  Serious: No
  Sender: FDA-Public Use
  Company Number: US-ELI_LILLY_AND_COMPANY-US201905011825

PATIENT
  Sex: Female

DRUGS (2)
  1. HUMULIN R [Suspect]
     Active Substance: INSULIN HUMAN
     Indication: TYPE 1 DIABETES MELLITUS
     Dosage: 2-3 INTERNATIONAL UNIT, UNKNOWN
     Route: 058
     Dates: start: 198705
  2. HUMULIN N [Suspect]
     Active Substance: INSULIN HUMAN
     Indication: TYPE 1 DIABETES MELLITUS
     Dosage: 12 INTERNATIONAL UNIT, UNKNOWN
     Route: 058
     Dates: start: 201805

REACTIONS (2)
  - Vision blurred [Unknown]
  - Blood glucose increased [Unknown]
